FAERS Safety Report 12253084 (Version 1)
Quarter: 2016Q2

REPORT INFORMATION
  Report Type: Spontaneous
  Country: UA (occurrence: UA)
  Receive Date: 20160411
  Receipt Date: 20160411
  Transmission Date: 20160815
  Serious: Yes (Other)
  Sender: FDA-Public Use
  Company Number: UA-PFIZER INC-2016176320

PATIENT
  Sex: Male

DRUGS (2)
  1. LYRICA [Suspect]
     Active Substance: PREGABALIN
     Indication: ANXIETY
     Dosage: 450 MG, DAILY (300 MG NOCTE AND 150 MG IN THE MORNING)
     Route: 048
  2. LYRICA [Suspect]
     Active Substance: PREGABALIN
     Indication: SLEEP DISORDER THERAPY

REACTIONS (3)
  - Enuresis [Not Recovered/Not Resolved]
  - Product use issue [Unknown]
  - Anal incontinence [Not Recovered/Not Resolved]
